FAERS Safety Report 12391663 (Version 1)
Quarter: 2016Q2

REPORT INFORMATION
  Report Type: Spontaneous
  Country: GB (occurrence: GB)
  Receive Date: 20160522
  Receipt Date: 20160522
  Transmission Date: 20160815
  Serious: Yes (Other)
  Sender: FDA-Public Use
  Company Number: GB-TEVA-660204ACC

PATIENT
  Age: 28 Year
  Sex: Female
  Weight: 73 kg

DRUGS (1)
  1. CHLORAMPHENICOL [Suspect]
     Active Substance: CHLORAMPHENICOL
     Indication: CONJUNCTIVITIS BACTERIAL
     Dosage: 1 DROP EVERY 2 HOURS FOR 48 HOURS, 1 DROP EVERY 4 HOURS FOR NEXT 3 DAYS.
     Route: 047
     Dates: start: 20160428, end: 20160502

REACTIONS (4)
  - Abdominal pain [Not Recovered/Not Resolved]
  - Frequent bowel movements [Unknown]
  - Faeces soft [Unknown]
  - Faecal volume increased [Unknown]

NARRATIVE: CASE EVENT DATE: 20160429
